FAERS Safety Report 24583336 (Version 1)
Quarter: 2024Q4

REPORT INFORMATION
  Report Type: Report from Study
  Country: BE (occurrence: BE)
  Receive Date: 20241106
  Receipt Date: 20241106
  Transmission Date: 20250115
  Serious: Yes (Hospitalization)
  Sender: ABBVIE
  Company Number: BE-ABBVIE-5988832

PATIENT
  Sex: Female

DRUGS (5)
  1. CARBIDOPA\LEVODOPA [Suspect]
     Active Substance: CARBIDOPA\LEVODOPA
     Indication: Parkinson^s disease
     Dosage: MD: 8.5ML, CD: 2.7ML/H, ED: 2.20ML DURING 16 HOURS
     Route: 050
     Dates: start: 20240816, end: 20240919
  2. CARBIDOPA\LEVODOPA [Suspect]
     Active Substance: CARBIDOPA\LEVODOPA
     Dosage: MD: 9.0ML, CD: 2.9ML/H, ED: 2.50ML DURING 16 HOURS
     Route: 050
     Dates: start: 20241031
  3. CARBIDOPA\LEVODOPA [Suspect]
     Active Substance: CARBIDOPA\LEVODOPA
     Dosage: MD: 7.5ML, CD: 2.4ML/H, ED: 2.20ML DURING 16 HOURS
     Route: 050
     Dates: start: 20240919, end: 20241023
  4. CARBIDOPA\LEVODOPA [Suspect]
     Active Substance: CARBIDOPA\LEVODOPA
     Route: 050
     Dates: start: 20230711
  5. CARBIDOPA\LEVODOPA [Suspect]
     Active Substance: CARBIDOPA\LEVODOPA
     Dosage: MD: 8.5ML, CD: 2.6ML/H, ED: 2.20ML DURING 16 HOURS
     Route: 050
     Dates: start: 20241023, end: 20241031

REACTIONS (2)
  - Arthralgia [Unknown]
  - Underdose [Unknown]
